FAERS Safety Report 19047046 (Version 1)
Quarter: 2021Q1

REPORT INFORMATION
  Report Type: Report from Study
  Country: IN (occurrence: IN)
  Receive Date: 20210323
  Receipt Date: 20210323
  Transmission Date: 20210420
  Serious: Yes (Other)
  Sender: FDA-Public Use
  Company Number: NVSC2021IN059145

PATIENT
  Age: 41 Year
  Sex: Female
  Weight: 84 kg

DRUGS (5)
  1. MEQSEL [Suspect]
     Active Substance: TRAMETINIB
     Indication: BRAIN NEOPLASM
  2. TRAMADOL. [Concomitant]
     Active Substance: TRAMADOL
     Indication: PRODUCT USED FOR UNKNOWN INDICATION
     Dosage: UNK
     Route: 065
     Dates: start: 202006
  3. RAFINLAR [Suspect]
     Active Substance: DABRAFENIB
     Indication: BRAIN NEOPLASM
  4. MEQSEL [Suspect]
     Active Substance: TRAMETINIB
     Indication: NON-SMALL CELL LUNG CANCER
     Dosage: 2 MG, QD (TABLET)
     Route: 048
     Dates: start: 202006
  5. RAFINLAR [Suspect]
     Active Substance: DABRAFENIB
     Indication: NON-SMALL CELL LUNG CANCER
     Dosage: 150 MG, BID (CAPSULE)
     Route: 048
     Dates: start: 202006

REACTIONS (5)
  - Malignant neoplasm progression [Unknown]
  - Non-small cell lung cancer [Unknown]
  - Movement disorder [Unknown]
  - Brain oedema [Unknown]
  - Product use in unapproved indication [Unknown]

NARRATIVE: CASE EVENT DATE: 202006
